FAERS Safety Report 8393944-X (Version None)
Quarter: 2012Q2

REPORT INFORMATION
  Report Type: 
  Country: None (occurrence: None)
  Receive Date: 20120530
  Receipt Date: 20120519
  Transmission Date: 20120825
  Serious: Yes (Death, Hospitalization, Other)
  Sender: FDA-Public Use
  Company Number: BE-PAR PHARMACEUTICAL, INC-2012SCPR004392

PATIENT

DRUGS (4)
  1. ONDANSETRON [Suspect]
     Indication: PRODUCT USED FOR UNKNOWN INDICATION
     Dosage: 10 DF, SINGLE
     Route: 048
  2. MIDAZOLAM [Suspect]
     Indication: PRODUCT USED FOR UNKNOWN INDICATION
     Dosage: 20 DF, SINGLE
     Route: 048
  3. DOMPERIDON [Suspect]
     Indication: PRODUCT USED FOR UNKNOWN INDICATION
     Dosage: 5 DF, SINGLE
     Route: 048
  4. CHLOROQUINE PHOSPHATE [Suspect]
     Indication: PRODUCT USED FOR UNKNOWN INDICATION
     Dosage: 58 DF, SINGLE
     Route: 048

REACTIONS (7)
  - MULTIPLE DRUG OVERDOSE [None]
  - LOSS OF CONSCIOUSNESS [None]
  - VENTRICULAR TACHYCARDIA [None]
  - NODAL RHYTHM [None]
  - BRAIN DEATH [None]
  - PULSELESS ELECTRICAL ACTIVITY [None]
  - VENTRICULAR FIBRILLATION [None]
